FAERS Safety Report 10062756 (Version 2)
Quarter: 2014Q2

REPORT INFORMATION
  Report Type: Spontaneous
  Country: ES (occurrence: ES)
  Receive Date: 20140407
  Receipt Date: 20140605
  Transmission Date: 20141212
  Serious: Yes (Other)
  Sender: FDA-Public Use
  Company Number: ES-009507513-1403ESP013866

PATIENT
  Age: 61 Year
  Sex: Male
  Weight: 62.5 kg

DRUGS (4)
  1. EFFICIB [Suspect]
     Indication: TYPE 2 DIABETES MELLITUS
     Dosage: 1 DF, BID, 1 IN MORNING AND 1 AT NIGHT
     Route: 048
     Dates: start: 201401
  2. EFFICIB [Suspect]
     Dosage: UNK
     Route: 048
     Dates: start: 201312, end: 201312
  3. PRITOR PLUS [Concomitant]
     Indication: HYPERTENSION
     Dosage: UNK
     Dates: start: 201301
  4. PRITOR PLUS [Concomitant]
     Dosage: HALF-TABLET ON THE MORNING
     Dates: start: 201405

REACTIONS (1)
  - Abnormal loss of weight [Recovering/Resolving]
